FAERS Safety Report 4706040-7 (Version None)
Quarter: 2005Q2

REPORT INFORMATION
  Report Type: 
  Country: None (occurrence: None)
  Receive Date: 20050627
  Receipt Date: 20050125
  Transmission Date: 20051028
  Serious: Yes (Other)
  Sender: FDA-Public Use
  Company Number: US-JNJFOC-20040306283

PATIENT
  Age: 37 Year
  Sex: Female

DRUGS (2)
  1. FENTANYL [Suspect]
     Indication: PAIN
     Dosage: 50 UG/HR, 1 IN 28 HOUR, TRANSDERMAL;  75 UG/HR, 1 IN 48 HOUR, TRANSDERMAL;  50 UG/HR, 1 IN 72 HOUR
     Route: 062
     Dates: start: 20010111, end: 20040304
  2. FENTANYL [Suspect]
     Indication: PAIN
     Dosage: 50 UG/HR, 1 IN 28 HOUR, TRANSDERMAL;  75 UG/HR, 1 IN 48 HOUR, TRANSDERMAL;  50 UG/HR, 1 IN 72 HOUR
     Route: 062
     Dates: start: 20040304

REACTIONS (20)
  - ABDOMINAL PAIN LOWER [None]
  - ANXIETY [None]
  - BLOOD PRESSURE INCREASED [None]
  - COMA [None]
  - DEPRESSION [None]
  - DISTURBANCE IN ATTENTION [None]
  - DYSPNOEA [None]
  - FEELING ABNORMAL [None]
  - HALLUCINATION [None]
  - HYPERHIDROSIS [None]
  - INSOMNIA [None]
  - JOINT SPRAIN [None]
  - LACRIMATION INCREASED [None]
  - LETHARGY [None]
  - MIGRAINE [None]
  - OEDEMA PERIPHERAL [None]
  - OVARIAN CYST [None]
  - PARAESTHESIA [None]
  - SINUSITIS FUNGAL [None]
  - THERAPEUTIC RESPONSE DECREASED [None]
